FAERS Safety Report 5678750-9 (Version None)
Quarter: 2008Q1

REPORT INFORMATION
  Report Type: 
  Country: None (occurrence: None)
  Receive Date: 20080324
  Receipt Date: 20080324
  Transmission Date: 20080703
  Serious: No
  Sender: FDA-Public Use
  Company Number: None

PATIENT
  Age: 42 Year
  Sex: Female
  Weight: 56.6996 kg

DRUGS (1)
  1. SINGULAIR [Suspect]
     Indication: URTICARIA CHRONIC
     Dosage: 10MG EVERY EVENING PO
     Route: 048
     Dates: start: 20080101, end: 20080215

REACTIONS (2)
  - ABNORMAL BEHAVIOUR [None]
  - MOOD ALTERED [None]
